FAERS Safety Report 12127180 (Version 1)
Quarter: 2016Q1

REPORT INFORMATION
  Report Type: Report from Study
  Country: CA (occurrence: CA)
  Receive Date: 20160229
  Receipt Date: 20160229
  Transmission Date: 20160526
  Serious: Yes (Hospitalization)
  Sender: FDA-Public Use
  Company Number: PHHY2015CA040739

PATIENT
  Age: 69 Year
  Sex: Female

DRUGS (3)
  1. SANDOSTATIN [Suspect]
     Active Substance: OCTREOTIDE ACETATE
     Indication: COLON CANCER METASTATIC
     Dosage: 100 UG, BID TO END 2 WEEKS POST 1ST LAR
     Route: 058
     Dates: start: 20150311, end: 201504
  2. CAPECITABINE. [Concomitant]
     Active Substance: CAPECITABINE
     Indication: PRODUCT USED FOR UNKNOWN INDICATION
     Dosage: 1500 MG, TWICE A DAY (BID) FOR 14 DAYS AND THEN OFF FOR 7 DAYS THEN REPEAT CYCLE
     Route: 048
  3. SANDOSTATIN LAR DEPOT [Suspect]
     Active Substance: OCTREOTIDE ACETATE
     Indication: COLON CANCER METASTATIC
     Dosage: 20 MG, QMO (ONCE A MONTH)
     Route: 030
     Dates: start: 20150401

REACTIONS (17)
  - Fatigue [Unknown]
  - Abdominal pain [Unknown]
  - Bowel movement irregularity [Unknown]
  - Limb discomfort [Unknown]
  - Joint swelling [Unknown]
  - Dyspnoea exertional [Unknown]
  - Intestinal obstruction [Unknown]
  - Muscular weakness [Unknown]
  - Dizziness [Unknown]
  - Respiratory rate increased [Unknown]
  - Dyspnoea [Recovering/Resolving]
  - Malaise [Unknown]
  - Peripheral swelling [Unknown]
  - Device occlusion [Unknown]
  - Blood pressure decreased [Unknown]
  - Gait disturbance [Unknown]
  - Vitreous floaters [Unknown]

NARRATIVE: CASE EVENT DATE: 20150430
